FAERS Safety Report 15742777 (Version 2)
Quarter: 2019Q1

REPORT INFORMATION
  Report Type: Spontaneous
  Country: IL (occurrence: IL)
  Receive Date: 20181219
  Receipt Date: 20190313
  Transmission Date: 20190417
  Serious: Yes (Hospitalization)
  Sender: FDA-Public Use
  Company Number: IL-BAXTER-2018BAX030635

PATIENT
  Age: 15 Year
  Sex: Female
  Weight: 23 kg

DRUGS (22)
  1. STERILE WATER FOR INJECTION [Suspect]
     Active Substance: WATER
     Indication: PARENTERAL NUTRITION
     Dosage: 1 ML/ML (IMPORTED FROM MARION NC, THE USA) (6 UNITS)
     Route: 042
     Dates: start: 20181129
  2. SYNTHAMIN [Suspect]
     Active Substance: AMINO ACIDS
     Indication: RILEY-DAY SYNDROME
     Dosage: (7 UNITS) (IMPORTED FROM THE UK)
     Route: 042
     Dates: start: 20181204
  3. SODIUM CHLORIDE. [Suspect]
     Active Substance: SODIUM CHLORIDE
     Indication: RILEY-DAY SYNDROME
     Dosage: (7 UNITS)
     Route: 042
     Dates: start: 20181204
  4. POTASSIUM CHLORIDE. [Suspect]
     Active Substance: POTASSIUM CHLORIDE
     Indication: PARENTERAL NUTRITION
     Dosage: (6 UNITS)
     Route: 042
     Dates: start: 20181129
  5. CERNEVIT [Suspect]
     Active Substance: VITAMINS
     Indication: RILEY-DAY SYNDROME
     Dosage: 1 ML/ML (6 UNITS)
     Route: 042
     Dates: start: 20181129
  6. ADDAMEL N [Suspect]
     Active Substance: CHROMIC CHLORIDE\CUPROUS CHLORIDE\FERRIC CHLORIDE\MANGANESE CHLORIDE\POTASSIUM IODIDE\SODIUM FLUORIDE\SODIUM MOLYBDATE DIHYDRATE\SODIUM SELENITE\ZINC CHLORIDE
     Indication: PARENTERAL NUTRITION
     Dosage: 1 ML/ML (6 UNITS)
     Route: 042
     Dates: start: 20181129
  7. STERILE WATER FOR INJECTION [Suspect]
     Active Substance: WATER
     Indication: RILEY-DAY SYNDROME
     Dosage: 1 ML/ML (IMPORTED FROM MARION NC, THE USA) (7 UNITS)
     Route: 042
     Dates: start: 20181204
  8. GLUCOSE 50% W/V CONCENTRATE FOR SOLUTION FOR INFUSION [Suspect]
     Active Substance: DEXTROSE
     Indication: RILEY-DAY SYNDROME
     Dosage: (IMPORTED FROM THE UK) (7 UNITS)
     Route: 042
     Dates: start: 20181204
  9. ADDAMEL N [Suspect]
     Active Substance: CHROMIC CHLORIDE\CUPROUS CHLORIDE\FERRIC CHLORIDE\MANGANESE CHLORIDE\POTASSIUM IODIDE\SODIUM FLUORIDE\SODIUM MOLYBDATE DIHYDRATE\SODIUM SELENITE\ZINC CHLORIDE
     Indication: RILEY-DAY SYNDROME
     Dosage: 1 ML/ML (7 UNITS)
     Route: 042
     Dates: start: 20181204
  10. SODIUM GLYCEROPHOSPHATE [Suspect]
     Active Substance: SODIUM GLYCEROPHOSPHATE
     Indication: PARENTERAL NUTRITION
     Dosage: (6 UNITS)
     Route: 042
     Dates: start: 20181129
  11. SYNTHAMIN [Suspect]
     Active Substance: AMINO ACIDS
     Indication: PARENTERAL NUTRITION
     Dosage: (6 UNITS) (IMPORTED FROM THE UK)
     Route: 042
     Dates: start: 20181129
  12. CALCIUM GLUCONATE. [Suspect]
     Active Substance: CALCIUM GLUCONATE
     Indication: RILEY-DAY SYNDROME
     Dosage: (7 UNITS)
     Route: 042
     Dates: start: 20181204
  13. MAGNESIUM SULFATE. [Suspect]
     Active Substance: MAGNESIUM SULFATE
     Indication: PARENTERAL NUTRITION
     Dosage: (6 UNITS)
     Route: 042
     Dates: start: 20181129
  14. CLINOLEIC  20% [Suspect]
     Active Substance: OLIVE OIL\SOYBEAN OIL
     Indication: RILEY-DAY SYNDROME
     Dosage: (7 UNITS)
     Route: 042
     Dates: start: 20181204
  15. CERNEVIT [Suspect]
     Active Substance: VITAMINS
     Indication: PARENTERAL NUTRITION
     Dosage: 1 ML/ML (7 UNITS)
     Route: 042
     Dates: start: 20181204
  16. POTASSIUM CHLORIDE. [Suspect]
     Active Substance: POTASSIUM CHLORIDE
     Indication: RILEY-DAY SYNDROME
     Dosage: (7 UNITS)
     Route: 042
     Dates: start: 20181204
  17. SODIUM GLYCEROPHOSPHATE [Suspect]
     Active Substance: SODIUM GLYCEROPHOSPHATE
     Indication: RILEY-DAY SYNDROME
     Dosage: (7 UNITS)
     Route: 042
     Dates: start: 20181204
  18. CALCIUM GLUCONATE. [Suspect]
     Active Substance: CALCIUM GLUCONATE
     Indication: PARENTERAL NUTRITION
     Dosage: (6 UNITS)
     Route: 042
     Dates: start: 20181129
  19. MAGNESIUM SULFATE. [Suspect]
     Active Substance: MAGNESIUM SULFATE
     Indication: RILEY-DAY SYNDROME
     Dosage: (7 UNITS)
     Route: 042
     Dates: start: 20181204
  20. GLUCOSE 50% W/V CONCENTRATE FOR SOLUTION FOR INFUSION [Suspect]
     Active Substance: DEXTROSE
     Indication: PARENTERAL NUTRITION
     Dosage: (IMPORTED FROM THE UK) (6 UNITS)
     Route: 042
     Dates: start: 20181129
  21. CLINOLEIC  20% [Suspect]
     Active Substance: OLIVE OIL\SOYBEAN OIL
     Indication: PARENTERAL NUTRITION
     Dosage: (6 UNITS)
     Route: 042
     Dates: start: 20181129
  22. SODIUM CHLORIDE. [Suspect]
     Active Substance: SODIUM CHLORIDE
     Indication: PARENTERAL NUTRITION
     Dosage: (6 UNITS)
     Route: 042
     Dates: start: 20181129

REACTIONS (2)
  - Sepsis [Recovered/Resolved]
  - Bacteraemia [Recovered/Resolved]

NARRATIVE: CASE EVENT DATE: 201812
